FAERS Safety Report 5891721-2 (Version None)
Quarter: 2008Q3

REPORT INFORMATION
  Report Type: 
  Country: None (occurrence: None)
  Receive Date: 20080922
  Receipt Date: 20080912
  Transmission Date: 20090109
  Serious: Yes (Disabling)
  Sender: FDA-Public Use
  Company Number: GB-B.I. PHARMACEUTICALS,INC./RIDGEFIELD-2008-UK-01332UK

PATIENT
  Sex: Male

DRUGS (2)
  1. MOBIC [Suspect]
     Indication: ARTHRALGIA
     Dosage: 15MG
     Route: 048
  2. MOBIC [Suspect]
     Indication: PSORIATIC ARTHROPATHY

REACTIONS (2)
  - HEARING IMPAIRED [None]
  - HYPOACUSIS [None]
